FAERS Safety Report 24383469 (Version 1)
Quarter: 2024Q3

REPORT INFORMATION
  Report Type: Spontaneous
  Country: US (occurrence: None)
  Receive Date: 20240930
  Receipt Date: 20240930
  Transmission Date: 20241016
  Serious: Yes (Other)
  Sender: Public
  Company Number: None

PATIENT
  Age: 60 Year
  Sex: Female
  Weight: 56.2 kg

DRUGS (1)
  1. DOTAREM [Suspect]
     Active Substance: GADOTERATE MEGLUMINE
     Dosage: OTHER FREQUENCY : ONCE;?
     Route: 042
     Dates: start: 20240706, end: 20240706

REACTIONS (2)
  - Contrast media reaction [None]
  - Dyspnoea [None]

NARRATIVE: CASE EVENT DATE: 20240706
